FAERS Safety Report 19416144 (Version 3)
Quarter: 2021Q3

REPORT INFORMATION
  Report Type: Spontaneous
  Country: BR (occurrence: BR)
  Receive Date: 20210614
  Receipt Date: 20210712
  Transmission Date: 20211014
  Serious: Yes (Other)
  Sender: FDA-Public Use
  Company Number: BR-009507513-2106BRA003181

PATIENT
  Age: 52 Year
  Sex: Male
  Weight: 115 kg

DRUGS (11)
  1. LIPLESS [Concomitant]
     Active Substance: CIPROFIBRATE
     Indication: BLOOD TRIGLYCERIDES INCREASED
     Dosage: 2 TABLETS PER DAY
  2. OMEPRAZOLE MAGNESIUM. [Concomitant]
     Active Substance: OMEPRAZOLE MAGNESIUM
     Indication: GASTRITIS
     Dosage: ONE TABLET PER DAY
  3. DIAMICRON [Concomitant]
     Active Substance: GLICLAZIDE
     Indication: DIABETES MELLITUS
     Dosage: 1 TABLET EVERY 12 HOURS
  4. JANUMET XR [Suspect]
     Active Substance: METFORMIN HYDROCHLORIDE\SITAGLIPTIN PHOSPHATE
     Indication: DIABETES MELLITUS
     Route: 048
  5. DOMPERIDONE [Concomitant]
     Active Substance: DOMPERIDONE
     Indication: LIVER DISORDER
     Dosage: 1 TABLET BEFORE LUNCH AND 1 BEFORE DINNER
  6. SINVASTATINA [Concomitant]
     Active Substance: SIMVASTATIN
     Indication: LIVER DISORDER
     Dosage: 1 TABLET PER DAY
  7. FORXIGA [Concomitant]
     Active Substance: DAPAGLIFLOZIN
     Dosage: 1 TABLET IN THE MORNING
  8. RABEPRAZOLE [Concomitant]
     Active Substance: RABEPRAZOLE
     Indication: LIVER DISORDER
     Dosage: 1 TABLET BEFORE BREAKFAST
  9. SANY D [Concomitant]
     Active Substance: CHOLECALCIFEROL
     Indication: VITAMIN D DEFICIENCY
     Dosage: 7000 IU INTERNATIONAL UNIT(S) PER DAY
  10. JANUMET [Suspect]
     Active Substance: METFORMIN HYDROCHLORIDE\SITAGLIPTIN PHOSPHATE
     Indication: DIABETES MELLITUS
     Dosage: 50/1000 MILLIGRAMS (MG), 1 TABLET EVERY 12 HOURS (1 BOX PER MONTH)
     Route: 048
     Dates: start: 201106
  11. PROPRANOLOL [Concomitant]
     Active Substance: PROPRANOLOL HYDROCHLORIDE
     Indication: LIVER DISORDER
     Dosage: 2 TABLETS PER DAY

REACTIONS (12)
  - Peripheral swelling [Recovered/Resolved]
  - Respiration abnormal [Recovered/Resolved]
  - Vitamin D deficiency [Unknown]
  - Hepatic cirrhosis [Unknown]
  - Thirst [Recovered/Resolved]
  - Blood glucose abnormal [Unknown]
  - Diabetic complication [Recovered/Resolved]
  - Pollakiuria [Recovered/Resolved]
  - Fatigue [Recovered/Resolved]
  - Somnolence [Recovered/Resolved]
  - Cholecystectomy [Unknown]
  - Product dose omission issue [Unknown]

NARRATIVE: CASE EVENT DATE: 2017
